FAERS Safety Report 8271137 (Version 5)
Quarter: 2013Q2

REPORT INFORMATION
  Report Type: Spontaneous
  Country: US (occurrence: US)
  Receive Date: 20111201
  Receipt Date: 20130404
  Transmission Date: 20140414
  Serious: Yes (Other)
  Sender: FDA-Public Use
  Company Number: US-ASTRAZENECA-2011SE71178

PATIENT
  Age: 54 Year
  Sex: Female

DRUGS (16)
  1. SEROQUEL [Suspect]
     Indication: BIPOLAR DISORDER
     Route: 048
  2. SEROQUEL [Suspect]
     Indication: ANXIETY
     Route: 048
  3. SEROQUEL [Suspect]
     Indication: DEPRESSION
     Route: 048
  4. SEROQUEL [Suspect]
     Indication: PANIC ATTACK
     Route: 048
  5. SEROQUEL [Suspect]
     Indication: SLEEP DISORDER
     Route: 048
  6. SEROQUEL [Suspect]
     Indication: BIPOLAR DISORDER
     Route: 048
  7. SEROQUEL [Suspect]
     Indication: ANXIETY
     Route: 048
  8. SEROQUEL [Suspect]
     Indication: DEPRESSION
     Route: 048
  9. SEROQUEL [Suspect]
     Indication: PANIC ATTACK
     Route: 048
  10. SEROQUEL [Suspect]
     Indication: SLEEP DISORDER
     Route: 048
  11. AZITHROMYCIN [Suspect]
     Route: 065
  12. XANAX [Concomitant]
  13. PAIN PILL FOR HER ARM [Concomitant]
  14. PAXIL [Concomitant]
  15. WATER PILL [Concomitant]
  16. PHENERGAN WITH CODEINE [Concomitant]

REACTIONS (12)
  - Humerus fracture [Unknown]
  - Fall [Unknown]
  - Soft tissue injury [Unknown]
  - Osteomyelitis [Unknown]
  - Callus formation delayed [Unknown]
  - Post procedural complication [Unknown]
  - Bronchitis [Unknown]
  - Sinusitis [Unknown]
  - Pharyngitis streptococcal [Unknown]
  - Abdominal discomfort [Unknown]
  - Local swelling [Unknown]
  - Dizziness [Unknown]
